FAERS Safety Report 8077095-X (Version None)
Quarter: 2012Q1

REPORT INFORMATION
  Report Type: 
  Country: None (occurrence: None)
  Receive Date: 20120127
  Receipt Date: 20120123
  Transmission Date: 20120608
  Serious: Yes (Other)
  Sender: FDA-Public Use
  Company Number: PHEH2012US001990

PATIENT
  Sex: Female

DRUGS (4)
  1. COUMADIN [Concomitant]
     Dosage: 4 MG, UNK
  2. RECLAST [Suspect]
     Indication: OSTEOPOROSIS
     Dosage: 5 MG/100ML, YEARLY
     Route: 042
     Dates: start: 20111101
  3. PRILOSEC [Concomitant]
     Indication: ULCER
  4. CALCIUM W/VITAMIN D NOS [Concomitant]
     Dosage: 1600 MG, UNK

REACTIONS (1)
  - MASS [None]
